FAERS Safety Report 7285295-1 (Version None)
Quarter: 2011Q1

REPORT INFORMATION
  Report Type: 
  Country: None (occurrence: None)
  Receive Date: 20110121
  Receipt Date: 20080530
  Transmission Date: 20110831
  Serious: No
  Sender: FDA-Public Use
  Company Number: 08-197

PATIENT
  Sex: Male

DRUGS (5)
  1. FAZACLO ODT [Suspect]
     Indication: SCHIZOPHRENIA
     Dosage: 75 MG IN THE EVENING PO
     Route: 048
     Dates: start: 20080213, end: 20080328
  2. COGENTIN [Concomitant]
  3. LEXAPRO [Concomitant]
  4. FAZACLO ODT [Suspect]
     Indication: SCHIZOPHRENIA
     Dosage: 50 MG IN THE MORNING PO
     Route: 048
     Dates: start: 20080213, end: 20080328
  5. RISPERDAL [Concomitant]

REACTIONS (2)
  - DEPRESSION [None]
  - PARANOIA [None]
